FAERS Safety Report 20744703 (Version 2)
Quarter: 2022Q2

REPORT INFORMATION
  Report Type: Report from Study
  Country: US (occurrence: US)
  Receive Date: 20220425
  Receipt Date: 20220429
  Transmission Date: 20220720
  Serious: Yes (Other)
  Sender: FDA-Public Use
  Company Number: US-BEH-2022143607

PATIENT
  Age: 63 Year
  Sex: Male

DRUGS (2)
  1. HIZENTRA [Suspect]
     Active Substance: HUMAN IMMUNOGLOBULIN G
     Indication: Chronic inflammatory demyelinating polyradiculoneuropathy
     Dosage: 20 GRAM, QW
     Route: 058
  2. HIZENTRA [Suspect]
     Active Substance: HUMAN IMMUNOGLOBULIN G
     Dosage: UNK
     Route: 058
     Dates: start: 20220411

REACTIONS (11)
  - Infusion site induration [Not Recovered/Not Resolved]
  - Paraesthesia [Recovering/Resolving]
  - Headache [Recovered/Resolved]
  - Fatigue [Recovered/Resolved]
  - Chronic inflammatory demyelinating polyradiculoneuropathy [Unknown]
  - Paraesthesia [Unknown]
  - Drug ineffective [Unknown]
  - Infusion site swelling [Recovered/Resolved]
  - Headache [Recovered/Resolved]
  - Fatigue [Recovered/Resolved]
  - Product use complaint [Not Recovered/Not Resolved]

NARRATIVE: CASE EVENT DATE: 20220411
